FAERS Safety Report 22400057 (Version 1)
Quarter: 2023Q2

REPORT INFORMATION
  Report Type: Spontaneous
  Country: CN (occurrence: CN)
  Receive Date: 20230602
  Receipt Date: 20230602
  Transmission Date: 20230722
  Serious: Yes (Hospitalization, Other)
  Sender: FDA-Public Use
  Company Number: None

PATIENT
  Age: 9 Year
  Sex: Female
  Weight: 28.4 kg

DRUGS (5)
  1. CYCLOPHOSPHAMIDE [Suspect]
     Active Substance: CYCLOPHOSPHAMIDE
     Indication: Hodgkin^s disease
     Dosage: 0.65G, QD, DILUTED WITH (4:1) LIQUID 500ML
     Route: 041
     Dates: start: 20230322, end: 20230322
  2. SODIUM CHLORIDE [Suspect]
     Active Substance: SODIUM CHLORIDE
     Indication: Medication dilution
     Dosage: 0.9%, 250ML, QD, USED TO DILUTE 0.1G OF ETOPOSIDE
     Route: 041
     Dates: start: 20230322, end: 20230324
  3. SODIUM CHLORIDE [Suspect]
     Active Substance: SODIUM CHLORIDE
     Dosage: 0.9%, 250ML, QD, USED TO DILUTE 25MG OF EPIRUBICIN HYDROCHLORIDE
     Route: 041
     Dates: start: 20230322, end: 20230322
  4. ETOPOSIDE [Suspect]
     Active Substance: ETOPOSIDE
     Indication: Hodgkin^s disease
     Dosage: 0.1G, QD, DILUTED WITH 250 ML OF 0.9% OF NS
     Route: 041
     Dates: start: 20230322, end: 20230324
  5. EPIRUBICIN [Suspect]
     Active Substance: EPIRUBICIN
     Indication: Hodgkin^s disease
     Dosage: 25MG, QD, DILUTED WITH 0.9% OF 250ML OF NS
     Route: 041
     Dates: start: 20230322, end: 20230322

REACTIONS (1)
  - Myelosuppression [Recovering/Resolving]

NARRATIVE: CASE EVENT DATE: 20230330
